FAERS Safety Report 7467370-1 (Version None)
Quarter: 2011Q2

REPORT INFORMATION
  Report Type: 
  Country: None (occurrence: None)
  Receive Date: 20110509
  Receipt Date: 20101222
  Transmission Date: 20111010
  Serious: No
  Sender: FDA-Public Use
  Company Number: US-ALEXION-A201001664

PATIENT

DRUGS (4)
  1. SOLIRIS [Suspect]
     Indication: PAROXYSMAL NOCTURNAL HAEMOGLOBINURIA
     Dosage: 600 MG, QW
     Route: 042
     Dates: start: 20091019
  2. CAMILA [Concomitant]
     Indication: ORAL CONTRACEPTION
     Dosage: .35 MG, UNK
     Route: 048
  3. SOLIRIS [Suspect]
     Dosage: 900 MG, Q2W
     Route: 042
     Dates: start: 20091130
  4. CYMBALTA [Concomitant]
     Dosage: 60 MG, QD
     Route: 048

REACTIONS (7)
  - HAEMATOCHEZIA [None]
  - HAEMOGLOBINURIA [None]
  - COUGH [None]
  - INFLUENZA [None]
  - HEADACHE [None]
  - BLOOD GLUCOSE DECREASED [None]
  - ABDOMINAL PAIN [None]
